FAERS Safety Report 7230222-6 (Version None)
Quarter: 2011Q1

REPORT INFORMATION
  Report Type: 
  Country: None (occurrence: None)
  Receive Date: 20110118
  Receipt Date: 20110114
  Transmission Date: 20110831
  Serious: No
  Sender: FDA-Public Use
  Company Number: US-PFIZER INC-2011010184

PATIENT
  Sex: Female
  Weight: 65.76 kg

DRUGS (5)
  1. FUROSEMIDE [Concomitant]
     Indication: URINARY INCONTINENCE
     Dosage: 20 MG, 1X/DAY
     Route: 048
  2. AMLODIPINE BESYLATE [Suspect]
     Indication: HYPERTENSION
     Dosage: 5 MG, 1X/DAY
     Route: 048
  3. DETROL [Concomitant]
     Indication: URINARY INCONTINENCE
     Dosage: 20 MG, 1X/DAY
     Route: 048
  4. METOPROLOL [Concomitant]
     Indication: CORONARY ARTERY DISEASE
     Dosage: UNK
     Route: 048
  5. PLAVIX [Concomitant]
     Indication: ANTICOAGULANT THERAPY
     Dosage: 75 MG, 1X/DAY
     Route: 048
     Dates: start: 20100101

REACTIONS (7)
  - MUCOSAL INFECTION [None]
  - DYSPHONIA [None]
  - INSOMNIA [None]
  - MUCOSAL DISCOLOURATION [None]
  - WEIGHT DECREASED [None]
  - COUGH [None]
  - EATING DISORDER [None]
